FAERS Safety Report 21923342 (Version 1)
Quarter: 2023Q1

REPORT INFORMATION
  Report Type: Report from Study
  Country: US (occurrence: US)
  Receive Date: 20230129
  Receipt Date: 20230129
  Transmission Date: 20230417
  Serious: Yes (Other)
  Sender: FDA-Public Use
  Company Number: US-ABBVIE-4284645

PATIENT
  Sex: Male

DRUGS (2)
  1. HUMIRA [Suspect]
     Active Substance: ADALIMUMAB
     Indication: Crohn^s disease
     Route: 058
  2. ENTYVIO [Concomitant]
     Active Substance: VEDOLIZUMAB
     Indication: Crohn^s disease
     Dosage: TOOK FOR  2.5 YEARS

REACTIONS (2)
  - Limb injury [Unknown]
  - Off label use [Unknown]
